FAERS Safety Report 23073973 (Version 2)
Quarter: 2023Q4

REPORT INFORMATION
  Report Type: Spontaneous
  Country: US (occurrence: US)
  Receive Date: 20231017
  Receipt Date: 20231220
  Transmission Date: 20240109
  Serious: No
  Sender: FDA-Public Use
  Company Number: US-BRISTOL-MYERS SQUIBB COMPANY-2023-147202

PATIENT
  Age: 72 Year
  Sex: Female
  Weight: 75.3 kg

DRUGS (2)
  1. REVLIMID [Suspect]
     Active Substance: LENALIDOMIDE
     Indication: Plasma cell myeloma
     Dosage: FREQ -DAILY FOR 21DAYS
     Route: 048
  2. REVLIMID [Suspect]
     Active Substance: LENALIDOMIDE
     Route: 048
     Dates: start: 20230601

REACTIONS (3)
  - COVID-19 [Unknown]
  - Diarrhoea [Recovering/Resolving]
  - Blood potassium decreased [Recovering/Resolving]

NARRATIVE: CASE EVENT DATE: 20231006
